FAERS Safety Report 18418699 (Version 1)
Quarter: 2020Q4

REPORT INFORMATION
  Report Type: Spontaneous
  Country: IT (occurrence: IT)
  Receive Date: 20201023
  Receipt Date: 20201023
  Transmission Date: 20210114
  Serious: Yes (Other)
  Sender: FDA-Public Use
  Company Number: IT-SA-2020SA283591

PATIENT

DRUGS (13)
  1. CYTARABINE. [Suspect]
     Active Substance: CYTARABINE
     Indication: PERIPHERAL T-CELL LYMPHOMA UNSPECIFIED STAGE III
  2. MELPHALAN. [Concomitant]
     Active Substance: MELPHALAN
     Indication: IMMUNOSUPPRESSANT DRUG THERAPY
  3. FLUDARABINE PHOSPHATE. [Suspect]
     Active Substance: FLUDARABINE PHOSPHATE
     Indication: IMMUNOSUPPRESSANT DRUG THERAPY
  4. MERCAPTOPURINE. [Suspect]
     Active Substance: MERCAPTOPURINE
     Indication: PERIPHERAL T-CELL LYMPHOMA UNSPECIFIED STAGE III
  5. CYTARABINE. [Suspect]
     Active Substance: CYTARABINE
     Indication: CHEMOTHERAPY
  6. MYCOPHENOLATE MOFETIL. [Concomitant]
     Active Substance: MYCOPHENOLATE MOFETIL
     Indication: PROPHYLAXIS AGAINST GRAFT VERSUS HOST DISEASE
     Dosage: UNK
  7. FLUDARABINE PHOSPHATE. [Suspect]
     Active Substance: FLUDARABINE PHOSPHATE
     Indication: CHEMOTHERAPY
     Dosage: UNK
  8. CAMPATH [Suspect]
     Active Substance: ALEMTUZUMAB
     Indication: T-CELL DEPLETION
     Dosage: UNK
  9. CAMPATH [Suspect]
     Active Substance: ALEMTUZUMAB
     Indication: PERIPHERAL T-CELL LYMPHOMA UNSPECIFIED STAGE III
  10. MERCAPTOPURINE. [Suspect]
     Active Substance: MERCAPTOPURINE
     Indication: CHEMOTHERAPY
     Dosage: UNK
  11. FLUDARABINE PHOSPHATE. [Suspect]
     Active Substance: FLUDARABINE PHOSPHATE
     Indication: PERIPHERAL T-CELL LYMPHOMA UNSPECIFIED STAGE III
     Dosage: UNK
  12. CYCLOSPORIN A [Concomitant]
     Active Substance: CYCLOSPORINE
     Indication: PROPHYLAXIS AGAINST GRAFT VERSUS HOST DISEASE
     Dosage: UNK
  13. MELPHALAN. [Concomitant]
     Active Substance: MELPHALAN
     Indication: PERIPHERAL T-CELL LYMPHOMA UNSPECIFIED STAGE III

REACTIONS (4)
  - Toxicity to various agents [Unknown]
  - Off label use [Unknown]
  - Inappropriate antidiuretic hormone secretion [Unknown]
  - Hyperbilirubinaemia [Unknown]
